FAERS Safety Report 15945415 (Version 3)
Quarter: 2019Q2

REPORT INFORMATION
  Report Type: Spontaneous
  Country: US (occurrence: US)
  Receive Date: 20190211
  Receipt Date: 20190405
  Transmission Date: 20190711
  Serious: No
  Sender: FDA-Public Use
  Company Number: US-SA-2019SA035853

PATIENT
  Age: 78 Year
  Sex: Female

DRUGS (19)
  1. PRALUENT [Suspect]
     Active Substance: ALIROCUMAB
     Indication: HYPERLIPIDAEMIA
     Dosage: 75 MG, QOW
     Route: 058
     Dates: start: 20190201
  2. AMLODIPINE BESYLATE. [Concomitant]
     Active Substance: AMLODIPINE BESYLATE
  3. COMBIGAN [Concomitant]
     Active Substance: BRIMONIDINE TARTRATE\TIMOLOL MALEATE
  4. PREDNISOLONE ACETATE. [Concomitant]
     Active Substance: PREDNISOLONE ACETATE
  5. TOBRAMYCIN. [Concomitant]
     Active Substance: TOBRAMYCIN
  6. REPATHA [Concomitant]
     Active Substance: EVOLOCUMAB
  7. METOPROLOL SUCCINATE. [Concomitant]
     Active Substance: METOPROLOL SUCCINATE
  8. DUREZOL [Concomitant]
     Active Substance: DIFLUPREDNATE
  9. PROLENSA [Concomitant]
     Active Substance: BROMFENAC SODIUM
  10. HYDROCHLOROTHIAZIDE. [Concomitant]
     Active Substance: HYDROCHLOROTHIAZIDE
  11. TRAVATAN [Concomitant]
     Active Substance: TRAVOPROST
  12. AMOXICILLIN/CLAVULANIC ACID [Concomitant]
     Active Substance: AMOXICILLIN\CLAVULANIC ACID
  13. TRAMADOL. [Concomitant]
     Active Substance: TRAMADOL
  14. SUMATRIPTAN SUCCINATE. [Concomitant]
     Active Substance: SUMATRIPTAN SUCCINATE
  15. FLUTICASONE PROPIONATE. [Concomitant]
     Active Substance: FLUTICASONE PROPIONATE
  16. RHOPRESSA [Concomitant]
     Active Substance: NETARSUDIL MESYLATE
  17. PRALUENT [Suspect]
     Active Substance: ALIROCUMAB
     Indication: BLOOD CHOLESTEROL
  18. NIFEDIPINE. [Concomitant]
     Active Substance: NIFEDIPINE
  19. NAPROXEN. [Concomitant]
     Active Substance: NAPROXEN

REACTIONS (9)
  - Nasal congestion [Recovering/Resolving]
  - Headache [Unknown]
  - Tinnitus [Unknown]
  - Bone pain [Recovering/Resolving]
  - Influenza like illness [Unknown]
  - Product dose omission [Unknown]
  - Blood pressure increased [Unknown]
  - Somnolence [Unknown]
  - Hypersensitivity [Recovering/Resolving]

NARRATIVE: CASE EVENT DATE: 201902
